FAERS Safety Report 6178712-1 (Version None)
Quarter: 2009Q2

REPORT INFORMATION
  Report Type: 
  Country: None (occurrence: None)
  Receive Date: 20090504
  Receipt Date: 20081027
  Transmission Date: 20091009
  Serious: No
  Sender: FDA-Public Use
  Company Number: US-ALEXION-A200800310

PATIENT
  Sex: Female

DRUGS (3)
  1. SOLIRIS [Suspect]
     Dosage: 900 MG Q12D
     Route: 042
     Dates: start: 20080916
  2. XANAX [Concomitant]
     Indication: ANXIETY
     Route: 048
  3. HYDROCODONE BITARTRATE [Concomitant]

REACTIONS (2)
  - CHROMATURIA [None]
  - FATIGUE [None]
